FAERS Safety Report 5989281-0 (Version None)
Quarter: 2008Q4

REPORT INFORMATION
  Report Type: 
  Country: None (occurrence: None)
  Receive Date: 20081205
  Receipt Date: 20081124
  Transmission Date: 20090506
  Serious: Yes (Hospitalization, Other)
  Sender: FDA-Public Use
  Company Number: GXKR2008ES11190

PATIENT
  Age: 62 Year
  Sex: Male

DRUGS (4)
  1. METHYLPREDNISOLONE 4MG TAB [Suspect]
     Indication: INFLAMMATION
     Dosage: 1G IN 500 ML SALINE, INTRAVENOUS
     Route: 042
  2. METHYLPREDNISOLONE 4MG TAB [Suspect]
     Indication: NEOPLASM
     Dosage: 1G IN 500 ML SALINE, INTRAVENOUS
     Route: 042
  3. SODIUM CHLORIDE (NGX) (SODIUM CHLORIDE) UNKNOWN [Suspect]
     Indication: INFLAMMATION
  4. SODIUM CHLORIDE (NGX) (SODIUM CHLORIDE) UNKNOWN [Suspect]
     Indication: NEOPLASM

REACTIONS (6)
  - ARTERIOVENOUS FISTULA [None]
  - CONCOMITANT DISEASE AGGRAVATED [None]
  - HYPOAESTHESIA [None]
  - MUSCULAR WEAKNESS [None]
  - PAIN IN EXTREMITY [None]
  - PARAPARESIS [None]
